FAERS Safety Report 7864804-5 (Version None)
Quarter: 2011Q4

REPORT INFORMATION
  Report Type: 
  Country: None (occurrence: None)
  Receive Date: 20111028
  Receipt Date: 20110421
  Transmission Date: 20120403
  Serious: No
  Sender: FDA-Public Use
  Company Number: US-GLAXOSMITHKLINE-A0849995A

PATIENT
  Age: 74 Year
  Sex: Female

DRUGS (8)
  1. DILTIAZEM HCL [Concomitant]
  2. HYDROCHLOROTHIAZIDE [Concomitant]
  3. PREDNISONE [Concomitant]
  4. ADVAIR DISKUS 100/50 [Suspect]
     Indication: CHRONIC OBSTRUCTIVE PULMONARY DISEASE
     Dosage: 1PUFF TWICE PER DAY
     Route: 055
     Dates: start: 20050101
  5. SINGULAIR [Concomitant]
  6. SPIRIVA [Concomitant]
  7. ALPRAZOLAM [Concomitant]
  8. VITAMIN TAB [Concomitant]

REACTIONS (9)
  - PRURITUS [None]
  - DRUG INEFFECTIVE [None]
  - PRODUCT QUALITY ISSUE [None]
  - EYE PAIN [None]
  - OVERDOSE [None]
  - EYE IRRITATION [None]
  - EAR PRURITUS [None]
  - DYSPNOEA [None]
  - PRURITUS GENERALISED [None]
